FAERS Safety Report 4643434-2 (Version None)
Quarter: 2005Q2

REPORT INFORMATION
  Report Type: 
  Country: None (occurrence: None)
  Receive Date: 20050420
  Receipt Date: 20050420
  Transmission Date: 20051028
  Serious: Yes (Other)
  Sender: FDA-Public Use
  Company Number: None

PATIENT
  Age: 38 Year
  Sex: Female
  Weight: 95.2554 kg

DRUGS (1)
  1. LEVOXYL [Suspect]
     Dosage: ONCE DAILY  TABLET ORAL
     Route: 048

REACTIONS (3)
  - MENORRHAGIA [None]
  - PHARMACEUTICAL PRODUCT COMPLAINT [None]
  - THYROID FUNCTION TEST ABNORMAL [None]
